FAERS Safety Report 5737302-2 (Version None)
Quarter: 2008Q2

REPORT INFORMATION
  Report Type: 
  Country: None (occurrence: None)
  Receive Date: 20080512
  Receipt Date: 20080512
  Transmission Date: 20081010
  Serious: Yes (Other)
  Sender: FDA-Public Use
  Company Number: None

PATIENT
  Age: 88 Year
  Sex: Male
  Weight: 81.6475 kg

DRUGS (1)
  1. CREST MOUTH WASH [Suspect]
     Indication: DENTAL DISORDER PROPHYLAXIS
     Dosage: MOUTHFUL TWICE A DAY/ABOUT ONE YEAR
     Dates: start: 20060101, end: 20071101

REACTIONS (1)
  - AGEUSIA [None]
